FAERS Safety Report 10178365 (Version 3)
Quarter: 2014Q2

REPORT INFORMATION
  Report Type: Report from Study
  Country: FI (occurrence: FI)
  Receive Date: 20140519
  Receipt Date: 20140627
  Transmission Date: 20141212
  Serious: Yes (Hospitalization)
  Sender: FDA-Public Use
  Company Number: FI-ROCHE-1393831

PATIENT
  Age: 69 Year
  Sex: Female
  Weight: 74.7 kg

DRUGS (3)
  1. TRASTUZUMAB EMTANSINE [Suspect]
     Indication: HER-2 POSITIVE BREAST CANCER
     Dosage: THE LAST DOSE (270MG) PRIOR TO THE SAE WAS ON 03/APR/2014
     Route: 042
     Dates: start: 20130108, end: 20140429
  2. TRASTUZUMAB EMTANSINE [Suspect]
     Dosage: RESTARTED ON 30/APR/2014
     Route: 042
     Dates: start: 20140430
  3. ATACAND [Concomitant]
     Route: 065
     Dates: start: 2005

REACTIONS (1)
  - Pneumonia [Recovered/Resolved]
